FAERS Safety Report 13113913 (Version 2)
Quarter: 2017Q1

REPORT INFORMATION
  Report Type: Spontaneous
  Country: US (occurrence: US)
  Receive Date: 20170113
  Receipt Date: 20170303
  Transmission Date: 20170428
  Serious: Yes (Disabling)
  Sender: FDA-Public Use
  Company Number: US-SA-2017SA004079

PATIENT
  Age: 47 Year
  Sex: Female

DRUGS (2)
  1. AUBAGIO [Suspect]
     Active Substance: TERIFLUNOMIDE
     Route: 065
     Dates: end: 2016
  2. TYSABRI [Concomitant]
     Active Substance: NATALIZUMAB
     Dates: end: 2016

REACTIONS (2)
  - Abasia [Unknown]
  - Unevaluable event [Unknown]
